FAERS Safety Report 9458545 (Version 1)
Quarter: 2013Q3

REPORT INFORMATION
  Report Type: Spontaneous
  Country: US (occurrence: US)
  Receive Date: 20130814
  Receipt Date: 20130814
  Transmission Date: 20140515
  Serious: No
  Sender: FDA-Public Use
  Company Number: US-009507513-1308USA006285

PATIENT
  Sex: Male

DRUGS (1)
  1. COPPERTONE SPORT CONTINUOUS SPRAY SPF-30 [Suspect]
     Indication: PRODUCT USED FOR UNKNOWN INDICATION
     Dosage: UNK, UNKNOWN
     Route: 061

REACTIONS (2)
  - Ocular hyperaemia [Not Recovered/Not Resolved]
  - Accidental exposure to product [Unknown]
